FAERS Safety Report 8332681 (Version 4)
Quarter: 2013Q3

REPORT INFORMATION
  Report Type: Spontaneous
  Country: US (occurrence: US)
  Receive Date: 20120111
  Receipt Date: 20130930
  Transmission Date: 20140515
  Serious: No
  Sender: FDA-Public Use
  Company Number: US-AMGEN-USASP2011068807

PATIENT
  Age: 76 Year
  Sex: Female

DRUGS (5)
  1. ENBREL [Suspect]
     Indication: RHEUMATOID ARTHRITIS
     Dosage: UNK
     Dates: start: 20111018, end: 20111018
  2. TREXALL [Concomitant]
     Dosage: 2.5 MG, QWK
     Route: 048
     Dates: start: 2002
  3. FOLIC ACID [Concomitant]
     Dosage: 1 MG, QD
  4. NAPROXEN                           /00256202/ [Concomitant]
     Dosage: 500 MG, BID
  5. PREDNISONE [Concomitant]
     Dosage: 5 MG,  DAILY

REACTIONS (2)
  - Tachycardia [Recovered/Resolved]
  - Palpitations [Recovered/Resolved]
